FAERS Safety Report 8230999-7 (Version None)
Quarter: 2012Q1

REPORT INFORMATION
  Report Type: 
  Country: None (occurrence: None)
  Receive Date: 20120320
  Receipt Date: 20120305
  Transmission Date: 20120608
  Serious: Yes (Hospitalization, Other)
  Sender: FDA-Public Use
  Company Number: 2012-043

PATIENT
  Age: 40 Year
  Sex: Male

DRUGS (2)
  1. DRUG USED IN DIABETES [Concomitant]
  2. PRIALT [Suspect]
     Indication: PAIN
     Dosage: 0.14 UG, ONCE/HOUR, INTRATHECAL
     Route: 037
     Dates: start: 20111117, end: 20120125

REACTIONS (5)
  - MUSCLE SPASTICITY [None]
  - PSYCHOTIC DISORDER [None]
  - PYREXIA [None]
  - MENTAL IMPAIRMENT [None]
  - DISORIENTATION [None]
